FAERS Safety Report 7822310-8 (Version None)
Quarter: 2011Q4

REPORT INFORMATION
  Report Type: 
  Country: None (occurrence: None)
  Receive Date: 20111018
  Receipt Date: 20100827
  Transmission Date: 20120403
  Serious: No
  Sender: FDA-Public Use
  Company Number: US-ASTRAZENECA-2010SE40642

PATIENT
  Age: 67 Year
  Sex: Female
  Weight: 47.2 kg

DRUGS (3)
  1. CRESTOR [Concomitant]
     Route: 048
  2. SYMBICORT [Suspect]
     Indication: CHRONIC OBSTRUCTIVE PULMONARY DISEASE
     Dosage: 320 UG BID
     Route: 055
     Dates: start: 20070101, end: 20100801
  3. SEROQUEL [Concomitant]
     Route: 048

REACTIONS (2)
  - DRUG DOSE OMISSION [None]
  - DYSPNOEA [None]
